FAERS Safety Report 16530244 (Version 1)
Quarter: 2019Q3

REPORT INFORMATION
  Report Type: Report from Study
  Country: US (occurrence: US)
  Receive Date: 20190704
  Receipt Date: 20190704
  Transmission Date: 20191004
  Serious: Yes (Hospitalization, Other)
  Sender: FDA-Public Use
  Company Number: US-BRISTOL-MYERS SQUIBB COMPANY-BMS-2019-063477

PATIENT
  Age: 74 Year
  Sex: Male
  Weight: 76.1 kg

DRUGS (3)
  1. TEMOZOLOMIDE. [Suspect]
     Active Substance: TEMOZOLOMIDE
     Indication: GLIOBLASTOMA
     Dosage: 150 MILLIGRAM/SQ. METER, ON DAYS 1-5 (MAY ESCALATE TO 200 MG/M2 FOR SUBSEQUENT CYCLES IF CYCLE 1 DOS
     Route: 065
     Dates: start: 20170802, end: 20170805
  2. IPILIMUMAB [Suspect]
     Active Substance: IPILIMUMAB
     Indication: GLIOBLASTOMA
     Dosage: 1 MILLIGRAM/KILOGRAM, OVER APPROXIMATELY 90 MINUTES ON DAY 1 X 4 CYCLES
     Route: 042
     Dates: start: 20170802, end: 20170802
  3. NIVOLUMAB [Suspect]
     Active Substance: NIVOLUMAB
     Indication: GLIOBLASTOMA
     Dosage: 3 MILLIGRAM/KILOGRAM, OVER APPROXIMATELY 60 MINUTES ON DAY 1 AND 15 X 16
     Route: 042
     Dates: start: 20170802, end: 20170816

REACTIONS (2)
  - Atrial fibrillation [Recovered/Resolved]
  - Syncope [Recovered/Resolved]

NARRATIVE: CASE EVENT DATE: 20170905
